FAERS Safety Report 14255335 (Version 1)
Quarter: 2017Q4

REPORT INFORMATION
  Report Type: Spontaneous
  Country: US (occurrence: US)
  Receive Date: 20171206
  Receipt Date: 20171206
  Transmission Date: 20180321
  Serious: No
  Sender: FDA-Public Use
  Company Number: US-TEVA-808690USA

PATIENT
  Sex: Female

DRUGS (1)
  1. CINQAIR [Suspect]
     Active Substance: RESLIZUMAB
     Dosage: 10.7143 MILLIGRAM DAILY;
     Route: 042
     Dates: start: 20170505

REACTIONS (2)
  - Pain in extremity [Unknown]
  - Peripheral swelling [Unknown]
